FAERS Safety Report 18519334 (Version 1)
Quarter: 2020Q4

REPORT INFORMATION
  Report Type: Report from Study
  Country: IT (occurrence: IT)
  Receive Date: 20201118
  Receipt Date: 20201118
  Transmission Date: 20210114
  Serious: Yes (Death)
  Sender: FDA-Public Use
  Company Number: IT-PFIZER INC-2020448644

PATIENT

DRUGS (2)
  1. GEMCITABINE HYDROCHLORIDE. [Suspect]
     Active Substance: GEMCITABINE HYDROCHLORIDE
     Indication: PANCREATIC CARCINOMA
     Dosage: 1000 MG/M2, CYCLIC (AS 30 MINS; WEEKLY FOR 7 CONSECUTIVE WEEKS (CYCLE 1), FOLLOWED BY 1WEEK OF REST)
     Route: 042
  2. GEMCITABINE HYDROCHLORIDE. [Suspect]
     Active Substance: GEMCITABINE HYDROCHLORIDE
     Dosage: 1000 MG/M2, CYCLIC (AS 30 MINS; CONTINUED ON DAYS 1, 8, AND 15 EVERY 28DAYS)
     Route: 042

REACTIONS (1)
  - Gastrointestinal haemorrhage [Fatal]
